FAERS Safety Report 11707769 (Version 2)
Quarter: 2015Q4

REPORT INFORMATION
  Report Type: Spontaneous
  Country: JP (occurrence: JP)
  Receive Date: 20151106
  Receipt Date: 20151127
  Transmission Date: 20160304
  Serious: Yes (Other)
  Sender: FDA-Public Use
  Company Number: PHJP2015JP019218

PATIENT
  Age: 83 Year
  Sex: Male

DRUGS (1)
  1. NEORAL [Suspect]
     Active Substance: CYCLOSPORINE
     Indication: INTERSTITIAL LUNG DISEASE
     Dosage: 100 MG, QD
     Route: 048

REACTIONS (4)
  - Off label use [Unknown]
  - Melaena [Unknown]
  - Oral administration complication [Unknown]
  - Immunosuppressant drug level decreased [Unknown]
